FAERS Safety Report 5380767-9 (Version None)
Quarter: 2007Q3

REPORT INFORMATION
  Report Type: 
  Country: None (occurrence: None)
  Receive Date: 20070706
  Receipt Date: 20070703
  Transmission Date: 20080115
  Serious: Yes (Hospitalization)
  Sender: FDA-Public Use
  Company Number: A0661762A

PATIENT
  Sex: Female
  Weight: 2.6 kg

DRUGS (2)
  1. TRIZIVIR [Suspect]
     Indication: HIV INFECTION
     Dates: start: 20070111
  2. KALETRA [Concomitant]
     Indication: HIV INFECTION
     Dates: start: 20070111

REACTIONS (3)
  - DRUG EXPOSURE DURING PREGNANCY [None]
  - NEONATAL ASPIRATION [None]
  - PULMONARY HYPERTENSION [None]
